FAERS Safety Report 24048341 (Version 2)
Quarter: 2024Q3

REPORT INFORMATION
  Report Type: Spontaneous
  Country: JP (occurrence: JP)
  Receive Date: 20240704
  Receipt Date: 20240717
  Transmission Date: 20241016
  Serious: Yes (Life-Threatening, Hospitalization, Other)
  Sender: TEVA
  Company Number: JP-TEVA-VS-3214330

PATIENT
  Age: 66 Year
  Sex: Male

DRUGS (5)
  1. VOGLIBOSE [Suspect]
     Active Substance: VOGLIBOSE
     Indication: Diabetes mellitus
     Dosage: BEFORE EACH MEAL
     Route: 065
  2. PREDNISOLONE [Suspect]
     Active Substance: PREDNISOLONE
     Indication: Diarrhoea
     Route: 065
  3. INSULIN GLARGINE [Suspect]
     Active Substance: INSULIN GLARGINE
     Indication: Diabetes mellitus
     Dosage: 6 UNITS
     Route: 058
  4. IPILIMUMAB [Suspect]
     Active Substance: IPILIMUMAB
     Indication: Lung carcinoma cell type unspecified stage IV
     Route: 065
  5. NIVOLUMAB [Suspect]
     Active Substance: NIVOLUMAB
     Indication: Lung carcinoma cell type unspecified stage IV
     Route: 065

REACTIONS (7)
  - Type 1 diabetes mellitus [Unknown]
  - Loss of consciousness [Recovering/Resolving]
  - Diarrhoea [Unknown]
  - Hyperglycaemia [Unknown]
  - Pruritus [Unknown]
  - Diabetic ketoacidosis [Unknown]
  - Drug ineffective [Unknown]
